FAERS Safety Report 17966250 (Version 2)
Quarter: 2020Q3

REPORT INFORMATION
  Report Type: Report from Study
  Country: US (occurrence: US)
  Receive Date: 20200701
  Receipt Date: 20200806
  Transmission Date: 20201103
  Serious: No
  Sender: FDA-Public Use
  Company Number: US-SAGE-2020SAGE000053

PATIENT

DRUGS (3)
  1. KEPPRA [Concomitant]
     Active Substance: LEVETIRACETAM
     Indication: SEIZURE
     Dosage: 1000 MG BID
     Route: 065
     Dates: end: 20200619
  2. ZULRESSO [Suspect]
     Active Substance: BREXANOLONE
     Indication: PERINATAL DEPRESSION
     Dosage: UNK
     Route: 042
     Dates: start: 20200616, end: 20200619
  3. ZOLOFT [Suspect]
     Active Substance: SERTRALINE HYDROCHLORIDE
     Indication: PRODUCT USED FOR UNKNOWN INDICATION
     Dosage: 100 MG QD
     Route: 065
     Dates: end: 20200619

REACTIONS (6)
  - Depression [Unknown]
  - Feeling abnormal [Unknown]
  - Feeling guilty [Unknown]
  - Crying [Unknown]
  - Insomnia [Unknown]
  - Panic disorder [Unknown]

NARRATIVE: CASE EVENT DATE: 202006
